FAERS Safety Report 13267806 (Version 1)
Quarter: 2017Q1

REPORT INFORMATION
  Report Type: Spontaneous
  Country: US (occurrence: US)
  Receive Date: 20170222
  Receipt Date: 20170222
  Transmission Date: 20170428
  Serious: No
  Sender: FDA-Public Use
  Company Number: None

PATIENT
  Age: 34 Year
  Sex: Female
  Weight: 63 kg

DRUGS (1)
  1. BLISTEX [Suspect]
     Active Substance: BENZOCAINE
     Indication: CHAPPED LIPS

REACTIONS (2)
  - Respiratory disorder [None]
  - Hypoaesthesia [None]

NARRATIVE: CASE EVENT DATE: 20170215
